FAERS Safety Report 25077896 (Version 1)
Quarter: 2025Q1

REPORT INFORMATION
  Report Type: Spontaneous
  Country: FR (occurrence: FR)
  Receive Date: 20250314
  Receipt Date: 20250314
  Transmission Date: 20250409
  Serious: Yes (Hospitalization, Other)
  Sender: AUROBINDO
  Company Number: FR-AFSSAPS-PB2025000203

PATIENT
  Age: 84 Year
  Sex: Female
  Weight: 48 kg

DRUGS (7)
  1. DOXYCYCLINE [Suspect]
     Active Substance: DOXYCYCLINE
     Indication: Antibiotic prophylaxis
     Dosage: 100 MILLIGRAM, TWO TIMES A DAY (100 MG X 2/DAY)
     Route: 048
     Dates: start: 20241216
  2. DOXYCYCLINE [Suspect]
     Active Substance: DOXYCYCLINE
     Indication: Joint arthroplasty
  3. LINEZOLID [Suspect]
     Active Substance: LINEZOLID
     Indication: Antibiotic prophylaxis
     Dosage: 600 MILLIGRAM, TWO TIMES A DAY ( FOR 2 DAYS)
     Route: 048
     Dates: start: 20241216, end: 20241218
  4. LINEZOLID [Suspect]
     Active Substance: LINEZOLID
     Indication: Joint arthroplasty
     Dosage: 600 MILLIGRAM, ONCE A DAY (FOR 4 TO 6 WEEKS)
     Route: 048
     Dates: start: 20241218, end: 202501
  5. SIVEXTRO [Suspect]
     Active Substance: TEDIZOLID PHOSPHATE
     Indication: Antibiotic prophylaxis
     Dosage: 200 MILLIGRAM, ONCE A DAY
     Route: 048
     Dates: start: 202501, end: 20250201
  6. SIVEXTRO [Suspect]
     Active Substance: TEDIZOLID PHOSPHATE
     Indication: Joint arthroplasty
  7. FERROUS SULFATE [Concomitant]
     Active Substance: FERROUS SULFATE
     Indication: Mineral supplementation
     Dosage: 1 DOSAGE FORM, ONCE A DAY
     Route: 048
     Dates: start: 20250122, end: 20250211

REACTIONS (1)
  - Aplastic anaemia [Recovering/Resolving]

NARRATIVE: CASE EVENT DATE: 20250130
